FAERS Safety Report 23211244 (Version 1)
Quarter: 2023Q4

REPORT INFORMATION
  Report Type: Spontaneous
  Country: US (occurrence: US)
  Receive Date: 20231121
  Receipt Date: 20231121
  Transmission Date: 20240110
  Serious: No
  Sender: FDA-Public Use
  Company Number: US-SANOFI-01844775

PATIENT

DRUGS (2)
  1. THYROGEN [Suspect]
     Active Substance: THYROTROPIN ALFA
     Indication: Adjuvant therapy
     Dosage: 0.9 ML
     Route: 065
  2. IODINE I-123 [Concomitant]
     Active Substance: IODINE I-123
     Dosage: UNK

REACTIONS (1)
  - Off label use [Unknown]
